FAERS Safety Report 6292108-3 (Version None)
Quarter: 2009Q3

REPORT INFORMATION
  Report Type: 
  Country: None (occurrence: None)
  Receive Date: 20090731
  Receipt Date: 20090723
  Transmission Date: 20100115
  Serious: Yes (Other)
  Sender: FDA-Public Use
  Company Number: US-JNJFOC-20090707776

PATIENT
  Age: 52 Year
  Sex: Male

DRUGS (3)
  1. REMICADE [Suspect]
     Indication: CROHN'S DISEASE
     Route: 042
  2. TYSABRI [Suspect]
     Indication: CROHN'S DISEASE
     Dosage: INTERVAL FROM 1ST DOSE TO THE EVENT WAS 7 MONTHS.
     Route: 042
  3. PREDNISOLONE [Concomitant]
     Indication: CROHN'S DISEASE

REACTIONS (4)
  - HEPATOSPLENIC T-CELL LYMPHOMA [None]
  - MYELODYSPLASTIC SYNDROME [None]
  - MYELOFIBROSIS [None]
  - THROMBOCYTOPENIA [None]
